FAERS Safety Report 5723009-4 (Version None)
Quarter: 2008Q2

REPORT INFORMATION
  Report Type: 
  Country: None (occurrence: None)
  Receive Date: 20080428
  Receipt Date: 20080428
  Transmission Date: 20081010
  Serious: Yes (Other)
  Sender: FDA-Public Use
  Company Number: None

PATIENT
  Age: 57 Year
  Sex: Female

DRUGS (1)
  1. HYOSCYAMINE TABS 0.125MG [Suspect]
     Indication: DIARRHOEA
     Dosage: TAKE 1 TABLET THREE TIMES A DAY 30 MINUTES BEFORE MEALS AS NEEDED FOR DIARRHEA

REACTIONS (1)
  - HEADACHE [None]
